FAERS Safety Report 17781559 (Version 1)
Quarter: 2020Q2

REPORT INFORMATION
  Report Type: Spontaneous
  Country: US (occurrence: US)
  Receive Date: 20200513
  Receipt Date: 20200513
  Transmission Date: 20200714
  Serious: No
  Sender: FDA-Public Use
  Company Number: None

PATIENT
  Age: 60 Year
  Sex: Female
  Weight: 122.97 kg

DRUGS (2)
  1. AZATHIOPRINE (AZATHIOPRINE 50MG TAB) [Suspect]
     Active Substance: AZATHIOPRINE
     Indication: RETINITIS
     Dates: start: 20180205, end: 20180306
  2. AZATHIOPRINE (AZATHIOPRINE 50MG TAB) [Suspect]
     Active Substance: AZATHIOPRINE
     Indication: UVEITIS
     Dates: start: 20180205, end: 20180306

REACTIONS (1)
  - Rash [None]

NARRATIVE: CASE EVENT DATE: 20180306
